FAERS Safety Report 6045082-9 (Version None)
Quarter: 2009Q1

REPORT INFORMATION
  Report Type: 
  Country: None (occurrence: None)
  Receive Date: 20090116
  Receipt Date: 20090116
  Transmission Date: 20090719
  Serious: Yes (Hospitalization)
  Sender: FDA-Public Use
  Company Number: None

PATIENT
  Sex: Male
  Weight: 58 kg

DRUGS (2)
  1. COUMADIN [Suspect]
     Indication: ATRIAL FIBRILLATION
     Dosage: 4 MG DAILY PO  (DURATION: LONG TERM)
     Route: 048
  2. AVELOX [Suspect]
     Indication: LUNG INFECTION
     Dosage: 400 MG DAILY PO
     Route: 048

REACTIONS (2)
  - ASTHENIA [None]
  - DYSPNOEA [None]
